FAERS Safety Report 22285343 (Version 1)
Quarter: 2023Q2

REPORT INFORMATION
  Report Type: Spontaneous
  Country: US (occurrence: US)
  Receive Date: 20230504
  Receipt Date: 20230504
  Transmission Date: 20230721
  Serious: Yes (Other)
  Sender: FDA-Public Use
  Company Number: US-MALLINCKRODT-MNK202301451

PATIENT
  Age: 0 Year
  Sex: Female
  Weight: 1 kg

DRUGS (1)
  1. NITRIC OXIDE [Suspect]
     Active Substance: NITRIC OXIDE
     Indication: Product used for unknown indication
     Dosage: 20 PPM (RESPIRATORY)
     Route: 055
     Dates: start: 20230417

REACTIONS (3)
  - Oxygen saturation decreased [Recovered/Resolved]
  - Device delivery system issue [Recovered/Resolved]
  - Product use issue [Unknown]

NARRATIVE: CASE EVENT DATE: 20230401
